FAERS Safety Report 6108128-5 (Version None)
Quarter: 2009Q1

REPORT INFORMATION
  Report Type: 
  Country: None (occurrence: None)
  Receive Date: 20090304
  Receipt Date: 20080102
  Transmission Date: 20090719
  Serious: Yes (Other)
  Sender: FDA-Public Use
  Company Number: US-000029

PATIENT
  Age: 22 Year
  Sex: Female

DRUGS (2)
  1. ISOVUE-370 [Suspect]
     Indication: COMPUTERISED TOMOGRAM ABDOMEN
     Dosage: ONCE INTRAVENOUS
     Route: 042
     Dates: start: 20071121, end: 20071221
  2. ORAL CONTRAST MEDIA [Concomitant]

REACTIONS (1)
  - HYPERSENSITIVITY [None]
